FAERS Safety Report 14110788 (Version 1)
Quarter: 2017Q4

REPORT INFORMATION
  Report Type: Spontaneous
  Country: US (occurrence: None)
  Receive Date: 20171020
  Receipt Date: 20171020
  Transmission Date: 20180321
  Serious: Yes (Hospitalization)
  Sender: FDA-Public Use
  Company Number: None

PATIENT
  Age: 73 Year
  Sex: Female
  Weight: 117.2 kg

DRUGS (3)
  1. CARBOPLATIN (241240) [Suspect]
     Active Substance: CARBOPLATIN
     Dates: end: 20170922
  2. METFORMIN HYDROCHLORIDE. [Suspect]
     Active Substance: METFORMIN HYDROCHLORIDE
     Dosage: 34000MG 850 MG BID
     Dates: end: 20171011
  3. TAXOL [Suspect]
     Active Substance: PACLITAXEL
     Dates: end: 20170922

REACTIONS (14)
  - Decreased appetite [None]
  - Micturition urgency [None]
  - Urinary tract infection [None]
  - Malaise [None]
  - Escherichia bacteraemia [None]
  - Urinary incontinence [None]
  - Escherichia test positive [None]
  - Pyrexia [None]
  - Metastases to peritoneum [None]
  - Diarrhoea [None]
  - Vaginal discharge [None]
  - Chills [None]
  - Sepsis [None]
  - Escherichia urinary tract infection [None]

NARRATIVE: CASE EVENT DATE: 20171011
